FAERS Safety Report 8136389-X (Version None)
Quarter: 2012Q1

REPORT INFORMATION
  Report Type: 
  Country: None (occurrence: None)
  Receive Date: 20120214
  Receipt Date: 20120202
  Transmission Date: 20120608
  Serious: Yes (Hospitalization)
  Sender: FDA-Public Use
  Company Number: FR-ELI_LILLY_AND_COMPANY-FR201103003890

PATIENT
  Sex: Female

DRUGS (12)
  1. ALPRAZOLAM [Concomitant]
     Dosage: 0.25 MG, QD
  2. PLAVIX [Concomitant]
  3. SPIRIVA [Concomitant]
  4. PROZAC [Concomitant]
  5. GLYBURIDE [Concomitant]
  6. METFORMIN HCL [Concomitant]
  7. BISOPROLOL FUMARATE [Concomitant]
     Indication: HYPERTENSION
     Dosage: 10 MG, QD
     Dates: end: 20110215
  8. AMBRISENTAN [Suspect]
     Indication: PULMONARY ARTERIAL HYPERTENSION
     Dosage: 5 MG, UNK
     Route: 048
     Dates: start: 20110218, end: 20110223
  9. ZOLPIDEM [Concomitant]
  10. TADALAFIL [Suspect]
     Indication: PULMONARY ARTERIAL HYPERTENSION
     Dosage: 20 MG, QD
     Route: 048
     Dates: start: 20110218, end: 20110223
  11. ACUILIX [Concomitant]
     Indication: HYPERTENSION
     Dosage: 40 MG, DAILY (1/D)
     Dates: start: 20110217
  12. ACARBOSE [Concomitant]

REACTIONS (1)
  - RENAL FAILURE ACUTE [None]
